FAERS Safety Report 19251131 (Version 1)
Quarter: 2021Q2

REPORT INFORMATION
  Report Type: Spontaneous
  Country: US (occurrence: US)
  Receive Date: 20210513
  Receipt Date: 20210513
  Transmission Date: 20210717
  Serious: No
  Sender: FDA-Public Use
  Company Number: US-JNJFOC-20210508849

PATIENT
  Sex: Male

DRUGS (1)
  1. TYLENOL 8HR [Suspect]
     Active Substance: ACETAMINOPHEN
     Indication: PRODUCT USED FOR UNKNOWN INDICATION
     Dosage: 10?12 CAPLETS
     Route: 048
     Dates: start: 20210503, end: 20210504

REACTIONS (3)
  - Abdominal pain upper [Unknown]
  - Overdose [Unknown]
  - Headache [Unknown]

NARRATIVE: CASE EVENT DATE: 20210503
